FAERS Safety Report 18206395 (Version 1)
Quarter: 2020Q3

REPORT INFORMATION
  Report Type: Spontaneous
  Country: US (occurrence: US)
  Receive Date: 20200828
  Receipt Date: 20200828
  Transmission Date: 20201103
  Serious: No
  Sender: FDA-Public Use
  Company Number: US-ASTRAZENECA-2020SF03707

PATIENT
  Sex: Female
  Weight: 38.6 kg

DRUGS (4)
  1. LOPERAMIDE [Concomitant]
     Active Substance: LOPERAMIDE
  2. FASLODEX [Suspect]
     Active Substance: FULVESTRANT
     Indication: BREAST CANCER FEMALE
     Dosage: EVERY FOUR WEEKS
     Route: 030
     Dates: start: 202002
  3. NERATINIB [Concomitant]
     Active Substance: NERATINIB
  4. HERCEPTIN [Concomitant]
     Active Substance: TRASTUZUMAB

REACTIONS (3)
  - Injection site bruising [Unknown]
  - Injection site reaction [Unknown]
  - Injection site mass [Unknown]
